FAERS Safety Report 6362289-1 (Version None)
Quarter: 2009Q3

REPORT INFORMATION
  Report Type: 
  Country: None (occurrence: None)
  Receive Date: 20090918
  Receipt Date: 20090810
  Transmission Date: 20100115
  Serious: No
  Sender: FDA-Public Use
  Company Number: US-ABBOTT-09P-163-0590696-00

PATIENT
  Sex: Female
  Weight: 113.5 kg

DRUGS (8)
  1. HUMIRA [Suspect]
     Indication: JUVENILE ARTHRITIS
     Route: 058
     Dates: start: 20050101, end: 20060101
  2. HUMIRA [Suspect]
     Route: 058
     Dates: start: 20060101
  3. HUMIRA [Suspect]
     Indication: JUVENILE ARTHRITIS
     Route: 058
     Dates: start: 20060101, end: 20060101
  4. NABUMETONE [Concomitant]
     Indication: JUVENILE ARTHRITIS
  5. PREDNISONE [Concomitant]
     Indication: JUVENILE ARTHRITIS
  6. METHOTREXATE [Concomitant]
     Indication: JUVENILE ARTHRITIS
  7. FOLIC ACID [Concomitant]
     Indication: JUVENILE ARTHRITIS
     Dosage: DAILY
  8. PROZAC [Concomitant]
     Indication: DEPRESSION

REACTIONS (7)
  - BACK PAIN [None]
  - INAPPROPRIATE SCHEDULE OF DRUG ADMINISTRATION [None]
  - INJECTION SITE PAIN [None]
  - RASH PAPULAR [None]
  - RASH PRURITIC [None]
  - SCAR [None]
  - SPONDYLITIS [None]
